FAERS Safety Report 15603774 (Version 11)
Quarter: 2019Q1

REPORT INFORMATION
  Report Type: Report from Study
  Country: KR (occurrence: KR)
  Receive Date: 20181109
  Receipt Date: 20190322
  Transmission Date: 20190417
  Serious: Yes (Hospitalization)
  Sender: FDA-Public Use
  Company Number: KR-REGENERON PHARMACEUTICALS, INC.-2018-43521

PATIENT

DRUGS (7)
  1. GABAPENTIN. [Concomitant]
     Active Substance: GABAPENTIN
     Indication: NEURALGIA
     Dosage: 300 MG, TID
     Route: 048
     Dates: start: 20181008, end: 20181104
  2. CEMIPLIMAB [Suspect]
     Active Substance: CEMIPLIMAB
     Indication: CERVIX CARCINOMA
     Dosage: 350 MG, Q3W
     Route: 042
     Dates: start: 20180711, end: 20181008
  3. ULTRACET SEMI [Concomitant]
     Indication: HEADACHE
     Dosage: 1 TABLET, QD
     Route: 048
     Dates: start: 20181008, end: 20181104
  4. CEMIPLIMAB [Suspect]
     Active Substance: CEMIPLIMAB
     Dosage: 350 MG, Q3W
     Route: 042
     Dates: start: 20181119
  5. PREDNICARBATE. [Concomitant]
     Active Substance: PREDNICARBATE
     Indication: UROSTOMY
     Dosage: 1 FINGER TIP UNIT PRN
     Route: 061
     Dates: start: 20180525
  6. RIVAROXABAN [Concomitant]
     Active Substance: RIVAROXABAN
     Indication: EMBOLISM
     Dosage: 20 MG, QD
     Route: 048
     Dates: start: 20180608, end: 20181104
  7. DEXAMETHASONE. [Concomitant]
     Active Substance: DEXAMETHASONE
     Indication: PRURITUS
     Dosage: 1 FINGTER TIP UNIT PRN
     Route: 061
     Dates: start: 20180822

REACTIONS (2)
  - Urinary tract infection [Recovered/Resolved]
  - Acute kidney injury [Recovered/Resolved]

NARRATIVE: CASE EVENT DATE: 20181029
